FAERS Safety Report 17968790 (Version 1)
Quarter: 2020Q3

REPORT INFORMATION
  Report Type: Spontaneous
  Country: US (occurrence: US)
  Receive Date: 20200701
  Receipt Date: 20200701
  Transmission Date: 20201103
  Serious: No
  Sender: FDA-Public Use
  Company Number: US-SA-2020SA165273

PATIENT

DRUGS (1)
  1. PRALUENT [Suspect]
     Active Substance: ALIROCUMAB
     Indication: BLOOD CHOLESTEROL INCREASED
     Dosage: 75 MG, QOW
     Dates: start: 201912

REACTIONS (5)
  - Injection site erythema [Unknown]
  - Immune system disorder [Unknown]
  - Injection site swelling [Unknown]
  - Injection site discolouration [Unknown]
  - Vitiligo [Unknown]

NARRATIVE: CASE EVENT DATE: 2020
